FAERS Safety Report 6735520-8 (Version None)
Quarter: 2010Q2

REPORT INFORMATION
  Report Type: 
  Country: None (occurrence: None)
  Receive Date: 20100519
  Receipt Date: 20100506
  Transmission Date: 20101027
  Serious: Yes (Hospitalization)
  Sender: FDA-Public Use
  Company Number: 8047774

PATIENT
  Sex: Female
  Weight: 57 kg

DRUGS (7)
  1. CERTOLIZUMAB PEGOL (CERTOLIZUMAB PEGOL) [Suspect]
     Indication: CROHN'S DISEASE
     Dosage: (400 MG 1X/2 WEEKS SUBCUTANEOUS)
     Route: 058
     Dates: start: 20090528
  2. ADVIL LIQUI-GELS [Concomitant]
  3. NEOCITRAN /00082801/ [Concomitant]
  4. ATIVAN [Concomitant]
  5. DICLOFENAC [Concomitant]
  6. VITAMIN B-12 [Concomitant]
  7. AZINC [Concomitant]

REACTIONS (2)
  - CONDITION AGGRAVATED [None]
  - DEPRESSION [None]
